FAERS Safety Report 16077671 (Version 1)
Quarter: 2019Q1

REPORT INFORMATION
  Report Type: Report from Study
  Country: CA (occurrence: CA)
  Receive Date: 20190315
  Receipt Date: 20190315
  Transmission Date: 20190418
  Serious: Yes (Other)
  Sender: FDA-Public Use
  Company Number: CA-APOPHARMA-2019AP009034

PATIENT
  Sex: Female

DRUGS (1)
  1. FERRIPROX [Suspect]
     Active Substance: DEFERIPRONE
     Indication: HAEMOLYTIC ANAEMIA
     Dosage: 3000 MG, QD
     Route: 048
     Dates: start: 20160324, end: 20180901

REACTIONS (2)
  - Drug intolerance [Recovering/Resolving]
  - Chronic kidney disease [Recovering/Resolving]
